FAERS Safety Report 9723342 (Version 1)
Quarter: 2013Q4

REPORT INFORMATION
  Report Type: Spontaneous
  Country: US (occurrence: US)
  Receive Date: 20131202
  Receipt Date: 20131202
  Transmission Date: 20140711
  Serious: No
  Sender: FDA-Public Use
  Company Number: US-GLAXOSMITHKLINE-A1014768A

PATIENT
  Age: 6 Year
  Sex: Female

DRUGS (2)
  1. FLONASE [Suspect]
     Indication: RHINITIS ALLERGIC
     Dosage: 2SPR PER DAY
     Route: 045
     Dates: start: 20130205, end: 20130301
  2. ZYRTEC [Concomitant]

REACTIONS (2)
  - Fatigue [Recovering/Resolving]
  - Anxiety [Unknown]
